FAERS Safety Report 4486508-1 (Version None)
Quarter: 2004Q4

REPORT INFORMATION
  Report Type: 
  Country: None (occurrence: None)
  Receive Date: 20041021
  Receipt Date: 20041008
  Transmission Date: 20050328
  Serious: Yes (Death, Other)
  Sender: FDA-Public Use
  Company Number: ES-2004-033200

PATIENT
  Age: 70 Year
  Sex: Female
  Weight: 74 kg

DRUGS (13)
  1. CAMPATH [Suspect]
     Indication: MYCOSIS FUNGOIDES
     Dosage: INTRAVENOUS
     Route: 042
     Dates: start: 20040614, end: 20040705
  2. ALDACTONE [Concomitant]
  3. MAYGACE (MEGESTROL ACETATE) [Concomitant]
  4. VALGANCICLOVIR (VALGANCICLOVIR) [Concomitant]
  5. ACFOL [Concomitant]
  6. VANCOMYCIN [Concomitant]
  7. RYTMONORM (PROPAFENONE HYDROCHLORIDE) [Concomitant]
  8. LORAZEPAM [Concomitant]
  9. PANTECTA (PANTOPRAZOLE SODIUM) [Concomitant]
  10. COTRIM [Concomitant]
  11. BESITRAN (SERTRALINE HYDROCHLORIDE) [Concomitant]
  12. TRANKIMAZIN (ALPRAZOLAM) [Concomitant]
  13. ERYTHROPOIETIN (ERTYTROPOIETIN) [Concomitant]

REACTIONS (5)
  - CARDIO-RESPIRATORY ARREST [None]
  - CHEST PAIN [None]
  - NEUTROPENIA [None]
  - SYNCOPE [None]
  - SYNCOPE VASOVAGAL [None]
